FAERS Safety Report 8263017-5 (Version None)
Quarter: 2012Q1

REPORT INFORMATION
  Report Type: 
  Country: None (occurrence: None)
  Receive Date: 20120327
  Receipt Date: 20090223
  Transmission Date: 20120608
  Serious: Yes (Death)
  Sender: FDA-Public Use
  Company Number: PHEH2009US01459

PATIENT
  Age: 31 Year
  Sex: Female
  Weight: 124.7 kg

DRUGS (2)
  1. GLEEVEC [Suspect]
     Indication: LEUKAEMIA
     Dosage: 400 MG QD FOR 14 OF 21 DAYS, ORAL
     Route: 048
     Dates: start: 20081007, end: 20090129
  2. ANTINEOPLASTIC AGENTS (NO INGREDIENTS/SUBSTANCES) [Concomitant]

REACTIONS (2)
  - DISEASE PROGRESSION [None]
  - LEUKAEMIA [None]
